FAERS Safety Report 4553063-7 (Version None)
Quarter: 2005Q1

REPORT INFORMATION
  Report Type: 
  Country: None (occurrence: None)
  Receive Date: 20050113
  Receipt Date: 20050103
  Transmission Date: 20050727
  Serious: Yes (Death, Other)
  Sender: FDA-Public Use
  Company Number: 2002-10-0087

PATIENT
  Age: 66 Year
  Sex: Male

DRUGS (11)
  1. THALOMID [Suspect]
     Indication: PROSTATE CANCER
     Dosage: 200 MG, QHS, ORAL
     Route: 048
     Dates: start: 20000317, end: 20020415
  2. DOCETAXEL (DOCETAXEL) (INJECTION) [Suspect]
     Indication: PROSTATE CANCER
     Dosage: 30 MG/M2, ONCE PER WEEK FOR 3W, Q4W, INTRAVENOUS
     Route: 042
     Dates: start: 20000317, end: 20020415
  3. DEXAMETHASONE [Suspect]
     Indication: PROSTATE CANCER
     Dosage: 8 MG, 12 AND 1H BEFORE DOCETAXEL AND 12H AFTER, ORAL
     Route: 048
     Dates: start: 20000317, end: 20020415
  4. OXYCODONE (OXYCODONE) [Concomitant]
  5. PROCHLORPERAZINE [Concomitant]
  6. ROFECOXIB [Concomitant]
  7. SCOPOLAMINE (HYOSCINE) [Concomitant]
  8. NASAL SALINE (SODIUM CHLORIDE) [Concomitant]
  9. TYLENOL [Concomitant]
  10. VITAMIN E [Concomitant]
  11. ZOLADEX [Concomitant]

REACTIONS (7)
  - ARTHRALGIA [None]
  - COMPLETED SUICIDE [None]
  - DEPRESSION [None]
  - MALIGNANT NEOPLASM PROGRESSION [None]
  - NAUSEA [None]
  - PARAESTHESIA [None]
  - PROSTATE CANCER [None]
